FAERS Safety Report 15397327 (Version 4)
Quarter: 2020Q1

REPORT INFORMATION
  Report Type: Spontaneous
  Country: FR (occurrence: FR)
  Receive Date: 20180918
  Receipt Date: 20200323
  Transmission Date: 20200409
  Serious: Yes (Death, Hospitalization)
  Sender: FDA-Public Use
  Company Number: FR-MYLANLABS-2018M1067244

PATIENT
  Age: 75 Year
  Sex: Female
  Weight: 60 kg

DRUGS (4)
  1. ATARAX [Interacting]
     Active Substance: HYDROXYZINE HYDROCHLORIDE
     Indication: ANAESTHESIA
     Dosage: 100 MILLIGRAM, TOTAL
     Route: 048
     Dates: start: 20180324, end: 20180324
  2. RYTHMOL [Suspect]
     Active Substance: PROPAFENONE HYDROCHLORIDE
     Indication: ARRHYTHMIA
     Dosage: 1 DOSAGE FORM, QD
     Route: 048
     Dates: start: 201610
  3. SEPTANEST ADRENALINEE [Suspect]
     Active Substance: ARTICAINE HYDROCHLORIDE\EPINEPHRINE BITARTRATE
     Indication: DENTAL LOCAL ANAESTHESIA
     Dosage: 10 TO 11 CARTRIDGES (UNSPECIFIED EXACT DOSAGE)
     Route: 004
     Dates: start: 20180324, end: 20180324
  4. VALIUM [Interacting]
     Active Substance: DIAZEPAM
     Indication: ANAESTHESIA
     Dosage: 1 MILLIGRAM, TOTAL
     Route: 048
     Dates: start: 20180324, end: 20180324

REACTIONS (5)
  - Cardio-respiratory arrest [Fatal]
  - Drug interaction [Fatal]
  - Intentional overdose [Fatal]
  - Contraindicated product administered [Fatal]
  - Cardiac arrest [Fatal]

NARRATIVE: CASE EVENT DATE: 20180324
